FAERS Safety Report 5246481-5 (Version None)
Quarter: 2007Q1

REPORT INFORMATION
  Report Type: 
  Country: None (occurrence: None)
  Receive Date: 20070226
  Receipt Date: 20070216
  Transmission Date: 20070707
  Serious: Yes (Hospitalization, Other)
  Sender: FDA-Public Use
  Company Number: FR-BRISTOL-MYERS SQUIBB COMPANY-13682752

PATIENT
  Age: 33 Year
  Sex: Female

DRUGS (4)
  1. BLEOMYCIN [Suspect]
     Indication: HODGKIN'S DISEASE
     Route: 042
     Dates: start: 19991022, end: 20000208
  2. VELBE [Suspect]
     Indication: HODGKIN'S DISEASE
     Route: 042
     Dates: start: 19991022, end: 20000208
  3. DETICENE [Suspect]
     Indication: HODGKIN'S DISEASE
     Route: 042
     Dates: start: 19991022, end: 20000208
  4. ADRIBLASTINE [Suspect]
     Indication: HODGKIN'S DISEASE
     Route: 042
     Dates: start: 19991022, end: 20000208

REACTIONS (1)
  - ACUTE MYELOID LEUKAEMIA [None]
